FAERS Safety Report 16196233 (Version 1)
Quarter: 2019Q2

REPORT INFORMATION
  Report Type: Spontaneous
  Country: US (occurrence: US)
  Receive Date: 20190415
  Receipt Date: 20190415
  Transmission Date: 20190711
  Serious: Yes (Other)
  Sender: FDA-Public Use
  Company Number: US-BAYER-2019-070860

PATIENT
  Age: 2 Year
  Sex: Male
  Weight: 30 kg

DRUGS (3)
  1. MIRALAX [Suspect]
     Active Substance: POLYETHYLENE GLYCOL 3350
     Indication: LAXATIVE SUPPORTIVE CARE
     Dosage: UNK
     Route: 048
     Dates: start: 2010, end: 201807
  2. MIRALAX [Suspect]
     Active Substance: POLYETHYLENE GLYCOL 3350
     Indication: LAXATIVE SUPPORTIVE CARE
     Dosage: 11 DF, QD
  3. MIRALAX [Suspect]
     Active Substance: POLYETHYLENE GLYCOL 3350
     Indication: LAXATIVE SUPPORTIVE CARE
     Dosage: UNK
     Dates: start: 201902

REACTIONS (7)
  - Intentional self-injury [Not Recovered/Not Resolved]
  - Product use in unapproved indication [None]
  - Abnormal behaviour [Recovering/Resolving]
  - Anxiety [Unknown]
  - Depression [Not Recovered/Not Resolved]
  - Off label use [None]
  - Aggression [Not Recovered/Not Resolved]
